FAERS Safety Report 9961569 (Version 1)
Quarter: 2014Q1

REPORT INFORMATION
  Report Type: Spontaneous
  Country: US (occurrence: None)
  Receive Date: 20140304
  Receipt Date: 20140304
  Transmission Date: 20141002
  Serious: Yes (Hospitalization)
  Sender: FDA-Public Use
  Company Number: None

PATIENT
  Age: 70 Year
  Sex: Male
  Weight: 78.6 kg

DRUGS (2)
  1. MELOXICAM [Suspect]
     Indication: PAIN
     Route: 048
     Dates: start: 20101117, end: 20140124
  2. CARBIDOPA/LEVODOPA [Suspect]
     Indication: PARKINSON^S DISEASE
     Dosage: 2 TAB, QID, PO
     Route: 048
     Dates: start: 20140114, end: 20140124

REACTIONS (3)
  - Syncope [None]
  - Anaemia [None]
  - Hypovolaemia [None]
